FAERS Safety Report 19262900 (Version 1)
Quarter: 2021Q2

REPORT INFORMATION
  Report Type: Spontaneous
  Country: IN (occurrence: IN)
  Receive Date: 20210517
  Receipt Date: 20210517
  Transmission Date: 20210717
  Serious: Yes (Hospitalization, Other)
  Sender: FDA-Public Use
  Company Number: IN-EPICPHARMA-IN-2021EPCLIT00519

PATIENT
  Age: 14 Year
  Sex: Female

DRUGS (4)
  1. IBUPROFEN. [Concomitant]
     Active Substance: IBUPROFEN
     Route: 065
  2. PHENYTOIN. [Suspect]
     Active Substance: PHENYTOIN
     Indication: PRODUCT USED FOR UNKNOWN INDICATION
     Route: 048
  3. RANITIDINE. [Suspect]
     Active Substance: RANITIDINE
     Indication: PRODUCT USED FOR UNKNOWN INDICATION
     Route: 048
  4. MIDAZOLAM. [Interacting]
     Active Substance: MIDAZOLAM
     Indication: SEIZURE
     Route: 065

REACTIONS (5)
  - Drug interaction [Unknown]
  - Hypotension [Unknown]
  - Toxicity to various agents [Unknown]
  - Seizure [Unknown]
  - Arthralgia [Unknown]
